FAERS Safety Report 20816398 (Version 1)
Quarter: 2022Q2

REPORT INFORMATION
  Report Type: Spontaneous
  Country: BR (occurrence: BR)
  Receive Date: 20220512
  Receipt Date: 20220512
  Transmission Date: 20220721
  Serious: Yes (Hospitalization, Other)
  Sender: FDA-Public Use
  Company Number: BR-AUROBINDO-AUR-APL-2022-016270

PATIENT
  Age: 54 Year
  Sex: Male

DRUGS (1)
  1. BELINOSTAT [Suspect]
     Active Substance: BELINOSTAT
     Indication: Cutaneous T-cell lymphoma
     Dosage: UNK
     Route: 065

REACTIONS (5)
  - Herpes zoster [Recovering/Resolving]
  - Fungal infection [Recovering/Resolving]
  - Herpes virus infection [Recovering/Resolving]
  - Skin lesion [Recovering/Resolving]
  - Off label use [Recovered/Resolved]
